FAERS Safety Report 6753240-0 (Version None)
Quarter: 2010Q2

REPORT INFORMATION
  Report Type: 
  Country: None (occurrence: None)
  Receive Date: 20100603
  Receipt Date: 20100521
  Transmission Date: 20101027
  Serious: Yes (Other)
  Sender: FDA-Public Use
  Company Number: PHHY2010US07229

PATIENT
  Sex: Female

DRUGS (8)
  1. ZELNORM [Suspect]
     Dosage: 6 MG
     Route: 048
     Dates: start: 20010101
  2. ZELNORM [Suspect]
     Dosage: UNK
     Route: 048
     Dates: start: 20020101
  3. EFFEXOR [Concomitant]
  4. SEROQUEL [Concomitant]
  5. OMEPRAZOLE [Concomitant]
  6. ATENOLOL [Concomitant]
  7. FOCALIN [Concomitant]
  8. FLEXERIL [Concomitant]

REACTIONS (5)
  - CARDIAC ABLATION [None]
  - CEREBROVASCULAR ACCIDENT [None]
  - DIZZINESS [None]
  - HEART RATE INCREASED [None]
  - LOSS OF CONSCIOUSNESS [None]
